FAERS Safety Report 20951510 (Version 1)
Quarter: 2022Q2

REPORT INFORMATION
  Report Type: Spontaneous
  Country: US (occurrence: US)
  Receive Date: 20220613
  Receipt Date: 20220613
  Transmission Date: 20220721
  Serious: Yes (Hospitalization, Other)
  Sender: FDA-Public Use
  Company Number: US-UCBSA-2022027088

PATIENT
  Sex: Male

DRUGS (1)
  1. CIMZIA [Suspect]
     Active Substance: CERTOLIZUMAB PEGOL
     Indication: Psoriasis
     Dosage: 200 MILLIGRAM, EV 2 WEEKS(QOW)
     Route: 058
     Dates: start: 20210821

REACTIONS (8)
  - Spinal operation [Unknown]
  - Urinary tract infection [Unknown]
  - Seasonal allergy [Unknown]
  - Escherichia infection [Unknown]
  - White blood cell count increased [Unknown]
  - Back pain [Unknown]
  - Micturition urgency [Unknown]
  - Dysuria [Unknown]
